FAERS Safety Report 4870088-2 (Version None)
Quarter: 2005Q4

REPORT INFORMATION
  Report Type: 
  Country: None (occurrence: None)
  Receive Date: 20051229
  Receipt Date: 20051229
  Transmission Date: 20060501
  Serious: Yes (Death)
  Sender: FDA-Public Use
  Company Number: None

PATIENT
  Sex: Female
  Weight: 103 kg

DRUGS (5)
  1. CYCLOPHOSPHAMIDE [Suspect]
     Indication: ACUTE LYMPHOCYTIC LEUKAEMIA
     Dosage: SEE IMAGE
     Route: 042
     Dates: start: 20051217, end: 20051217
  2. DAUNORUBICIN [Suspect]
     Dosage: SEE IMAGE
     Route: 042
     Dates: start: 20051217, end: 20051219
  3. DEXAMETHASONE TAB [Suspect]
     Dosage: SEE IMAGE
     Route: 048
     Dates: start: 20051217, end: 20051223
  4. VINCRISTINE [Concomitant]
     Dosage: SEE IMAGE
     Route: 042
     Dates: start: 20051217, end: 20051224
  5. ELSPAR [Suspect]
     Dosage: SEE IMAGE
     Route: 023
     Dates: start: 20051217, end: 20051224

REACTIONS (8)
  - ASPIRATION [None]
  - CARDIO-RESPIRATORY ARREST [None]
  - EPISTAXIS [None]
  - HAEMATEMESIS [None]
  - HYPOTENSION [None]
  - LOSS OF CONSCIOUSNESS [None]
  - RENAL FAILURE ACUTE [None]
  - SEPTIC SHOCK [None]
